FAERS Safety Report 4598544-5 (Version None)
Quarter: 2005Q1

REPORT INFORMATION
  Report Type: 
  Country: None (occurrence: None)
  Receive Date: 20050304
  Receipt Date: 20041210
  Transmission Date: 20050727
  Serious: Yes (Hospitalization)
  Sender: FDA-Public Use
  Company Number: US-ROCHE-389129

PATIENT
  Sex: Female

DRUGS (2)
  1. PEGASYS [Suspect]
     Dosage: ROUTE REPORTED AS INJ.
     Route: 050
     Dates: start: 20041001, end: 20041204
  2. COPEGUS [Suspect]
     Route: 048
     Dates: start: 20041001, end: 20041204

REACTIONS (5)
  - ABDOMINAL PAIN [None]
  - CHOLECYSTECTOMY [None]
  - CHOLELITHIASIS [None]
  - DYSPNOEA [None]
  - PLATELET COUNT DECREASED [None]
